FAERS Safety Report 12779528 (Version 1)
Quarter: 2016Q3

REPORT INFORMATION
  Report Type: Spontaneous
  Country: US (occurrence: US)
  Receive Date: 20160922
  Receipt Date: 20160922
  Transmission Date: 20161109
  Serious: Yes (Hospitalization)
  Sender: FDA-Public Use
  Company Number: None

PATIENT
  Age: 32 Year
  Sex: Male
  Weight: 126.3 kg

DRUGS (1)
  1. SULFAMETHOXAZOLE/TRIMETHOPRIM [Suspect]
     Active Substance: SULFAMETHOXAZOLE\TRIMETHOPRIM
     Indication: FOLLICULITIS

REACTIONS (7)
  - Diarrhoea [None]
  - Abdominal discomfort [None]
  - Pyrexia [None]
  - Hepatic enzyme increased [None]
  - Nausea [None]
  - Cholecystitis [None]
  - Vomiting [None]

NARRATIVE: CASE EVENT DATE: 20110820
